FAERS Safety Report 7420423-6 (Version None)
Quarter: 2011Q2

REPORT INFORMATION
  Report Type: 
  Country: None (occurrence: None)
  Receive Date: 20110409
  Receipt Date: 20110323
  Transmission Date: 20111010
  Serious: Yes (Death)
  Sender: FDA-Public Use
  Company Number: COL_08206_2011

PATIENT
  Age: 30 Year
  Sex: Female

DRUGS (3)
  1. CHLORHEXIDINE MOUTHWASH [Suspect]
     Indication: MUCOSAL INFLAMMATION
     Dosage: ORAL
     Route: 048
  2. CHLORHEXIDINE MOUTHWASH [Suspect]
     Indication: POSTOPERATIVE WOUND INFECTION
     Dosage: ORAL
     Route: 048
  3. CHLORHEXIDINE MOUTHWASH [Suspect]
     Indication: GINGIVITIS
     Dosage: ORAL
     Route: 048

REACTIONS (5)
  - ANAPHYLACTIC SHOCK [None]
  - PRURITUS [None]
  - HYPERSENSITIVITY [None]
  - LOSS OF CONSCIOUSNESS [None]
  - FEELING HOT [None]
